FAERS Safety Report 25583241 (Version 1)
Quarter: 2025Q3

REPORT INFORMATION
  Report Type: Spontaneous
  Country: EU (occurrence: EU)
  Receive Date: 20250721
  Receipt Date: 20250721
  Transmission Date: 20251021
  Serious: Yes (Death, Other)
  Sender: CELLTRION
  Company Number: EU-AstraZeneca-CH-00831138A

PATIENT

DRUGS (2)
  1. BEVACIZUMAB [Suspect]
     Active Substance: BEVACIZUMAB
     Indication: Product used for unknown indication
     Route: 065
  2. OLAPARIB [Suspect]
     Active Substance: OLAPARIB
     Indication: Product used for unknown indication
     Route: 065

REACTIONS (5)
  - Thrombocytopenia [Fatal]
  - Leukaemia [Fatal]
  - Anaemia [Fatal]
  - Sepsis [Fatal]
  - Neutropenia [Fatal]
